FAERS Safety Report 6436429-X (Version None)
Quarter: 2009Q4

REPORT INFORMATION
  Report Type: 
  Country: None (occurrence: None)
  Receive Date: 20091111
  Receipt Date: 20091102
  Transmission Date: 20100525
  Serious: Yes (Hospitalization)
  Sender: FDA-Public Use
  Company Number: BE-BRISTOL-MYERS SQUIBB COMPANY-14850861

PATIENT
  Age: 72 Year
  Sex: Female

DRUGS (2)
  1. MITOMYCIN [Suspect]
     Indication: URINARY BLADDER POLYP
     Dates: start: 20091008
  2. XANAX [Concomitant]
     Route: 048

REACTIONS (2)
  - BONE MARROW FAILURE [None]
  - CONSTIPATION [None]
